FAERS Safety Report 4955250-2 (Version None)
Quarter: 2006Q1

REPORT INFORMATION
  Report Type: 
  Country: None (occurrence: None)
  Receive Date: 20060328
  Receipt Date: 20060317
  Transmission Date: 20060701
  Serious: Yes (Hospitalization)
  Sender: FDA-Public Use
  Company Number: DE-JNJFOC-20060302392

PATIENT
  Sex: Female
  Weight: 71.4 kg

DRUGS (12)
  1. INFLIXIMAB [Suspect]
     Route: 042
  2. INFLIXIMAB [Suspect]
     Route: 042
  3. INFLIXIMAB [Suspect]
     Route: 042
  4. INFLIXIMAB [Suspect]
     Route: 042
  5. INFLIXIMAB [Suspect]
     Indication: CROHN'S DISEASE
     Route: 042
  6. CIPROBAY [Concomitant]
     Indication: CROHN'S DISEASE
     Route: 065
  7. AZATHIOPRINE [Concomitant]
     Indication: CROHN'S DISEASE
     Route: 065
  8. PREDNISOLONE [Concomitant]
     Route: 065
  9. PREDNISOLONE [Concomitant]
     Indication: CROHN'S DISEASE
     Route: 065
  10. CALCIUM GLUCONATE [Concomitant]
     Indication: OSTEOPOROSIS PROPHYLAXIS
     Route: 065
  11. VIT-D3 [Concomitant]
     Indication: OSTEOPOROSIS PROPHYLAXIS
     Route: 065
  12. L-THYROXIN [Concomitant]
     Indication: HYPOTHYROIDISM
     Route: 065

REACTIONS (2)
  - ABDOMINAL ABSCESS [None]
  - COLON CANCER [None]
